FAERS Safety Report 7076523-6 (Version None)
Quarter: 2010Q4

REPORT INFORMATION
  Report Type: 
  Country: None (occurrence: None)
  Receive Date: 20101101
  Receipt Date: 20100720
  Transmission Date: 20110411
  Serious: Yes (Hospitalization)
  Sender: FDA-Public Use
  Company Number: TW-BRISTOL-MYERS SQUIBB COMPANY-14235493

PATIENT
  Age: 35 Year
  Sex: Female

DRUGS (2)
  1. ARIPIPRAZOLE [Suspect]
     Indication: BIPOLAR I DISORDER
     Dosage: TABS
     Route: 048
     Dates: start: 20080513, end: 20080613
  2. ZOPICLONE [Concomitant]
     Dates: start: 20080604, end: 20080612

REACTIONS (2)
  - DELUSION OF GRANDEUR [None]
  - MANIA [None]
